FAERS Safety Report 15521963 (Version 2)
Quarter: 2018Q4

REPORT INFORMATION
  Report Type: Report from Study
  Country: US (occurrence: US)
  Receive Date: 20181017
  Receipt Date: 20181230
  Transmission Date: 20190205
  Serious: Yes (Other)
  Sender: FDA-Public Use
  Company Number: US-AMGEN-USASL2018115175

PATIENT
  Age: 84 Year
  Sex: Female

DRUGS (3)
  1. PREDNISONE. [Concomitant]
     Active Substance: PREDNISONE
     Dosage: UNK
  2. REPATHA [Suspect]
     Active Substance: EVOLOCUMAB
     Indication: BLOOD CHOLESTEROL INCREASED
  3. REPATHA [Suspect]
     Active Substance: EVOLOCUMAB
     Indication: CARDIOVASCULAR DISORDER
     Dosage: 140 MG, Q2WK
     Route: 065

REACTIONS (15)
  - Pain in extremity [Unknown]
  - Skin exfoliation [Unknown]
  - Asthenia [Recovered/Resolved]
  - Injection site pain [Recovered/Resolved]
  - Muscle spasms [Unknown]
  - Rash generalised [Unknown]
  - Pruritus [Unknown]
  - Bone pain [Unknown]
  - Rash papular [Unknown]
  - Arthralgia [Unknown]
  - Dyspnoea [Unknown]
  - Papule [Unknown]
  - Influenza like illness [Unknown]
  - Back pain [Unknown]
  - Fatigue [Unknown]

NARRATIVE: CASE EVENT DATE: 201807
